FAERS Safety Report 8569288-X (Version None)
Quarter: 2012Q3

REPORT INFORMATION
  Report Type: 
  Country: None (occurrence: None)
  Receive Date: 20120803
  Receipt Date: 20120531
  Transmission Date: 20120928
  Serious: No
  Sender: FDA-Public Use
  Company Number: US-ABBOTT-12P-163-0941750-00

PATIENT
  Sex: Female
  Weight: 76.272 kg

DRUGS (5)
  1. NIASPAN [Suspect]
     Indication: BLOOD CHOLESTEROL INCREASED
     Dates: start: 20110101, end: 20110101
  2. LOVAZA [Concomitant]
     Indication: PRODUCT USED FOR UNKNOWN INDICATION
  3. NIASPAN [Suspect]
     Dates: end: 20110101
  4. SYNTHROID [Concomitant]
     Indication: PRODUCT USED FOR UNKNOWN INDICATION
  5. NIASPAN [Suspect]
     Dates: start: 20110101

REACTIONS (1)
  - PRURITUS [None]
